FAERS Safety Report 5613548-9 (Version None)
Quarter: 2008Q1

REPORT INFORMATION
  Report Type: 
  Country: None (occurrence: None)
  Receive Date: 20080205
  Receipt Date: 20080124
  Transmission Date: 20080703
  Serious: Yes (Other)
  Sender: FDA-Public Use
  Company Number: GB-ELI_LILLY_AND_COMPANY-GB200801005454

PATIENT
  Age: 68 Year
  Sex: Female
  Weight: 37 kg

DRUGS (6)
  1. EVISTA [Suspect]
     Indication: OSTEOPOROSIS
     Dosage: 60 MG, UNK
     Route: 048
     Dates: start: 20070823
  2. CALCICHEW D3 [Concomitant]
     Indication: OSTEOPOROSIS
     Dosage: 2 D/F, DAILY (1/D)
     Route: 048
     Dates: start: 20060101
  3. PARACETAMOL [Concomitant]
     Indication: BACK PAIN
     Dosage: 8 D/F, DAILY (1/D)
     Route: 048
     Dates: start: 19970101
  4. QUININE [Concomitant]
     Indication: MUSCLE SPASMS
     Dosage: 300 MG, AS NEEDED
     Route: 048
     Dates: start: 20050101
  5. RANITIDINE [Concomitant]
     Indication: DYSPEPSIA
     Dosage: 150 MG, 2 AS NEEDED
     Route: 048
     Dates: start: 19970101
  6. TRAMADOL HCL [Concomitant]
     Indication: BACK PAIN
     Dosage: 8 D/F, DAILY (1/D)
     Route: 048
     Dates: start: 19970101

REACTIONS (6)
  - ALOPECIA [None]
  - MUSCLE SPASMS [None]
  - PRURITUS GENERALISED [None]
  - SKIN BURNING SENSATION [None]
  - SKIN DISORDER [None]
  - SKIN REACTION [None]
